FAERS Safety Report 9458779 (Version 1)
Quarter: 2013Q3

REPORT INFORMATION
  Report Type: Spontaneous
  Country: US (occurrence: US)
  Receive Date: 20130814
  Receipt Date: 20130814
  Transmission Date: 20140515
  Serious: Yes (Hospitalization, Disabling)
  Sender: FDA-Public Use
  Company Number: US-009507513-1308USA001960

PATIENT
  Age: 49 Year
  Sex: Female
  Weight: 87.75 kg

DRUGS (1)
  1. SAPHRIS [Suspect]
     Indication: MANIA
     Dosage: 10 MG, BID
     Route: 048

REACTIONS (4)
  - Chest pain [Unknown]
  - Emotional disorder [Unknown]
  - Nervousness [Unknown]
  - Incorrect route of drug administration [Unknown]
